FAERS Safety Report 15409343 (Version 3)
Quarter: 2019Q2

REPORT INFORMATION
  Report Type: Report from Study
  Country: US (occurrence: US)
  Receive Date: 20180920
  Receipt Date: 20190412
  Transmission Date: 20190711
  Serious: Yes (Hospitalization, Other)
  Sender: FDA-Public Use
  Company Number: US-SA-2018SA243768

PATIENT
  Age: 81 Year
  Sex: Male

DRUGS (3)
  1. INSULIN GLARGINE [Suspect]
     Active Substance: INSULIN GLARGINE
     Indication: TYPE 2 DIABETES MELLITUS
     Dosage: UNK UNK, QD
     Route: 058
  2. INSULIN GLARGINE [Suspect]
     Active Substance: INSULIN GLARGINE
     Dosage: 12 IU, QOD
     Route: 058
  3. INSULIN GLARGINE [Suspect]
     Active Substance: INSULIN GLARGINE
     Dosage: 12 IU, QD
     Route: 058

REACTIONS (13)
  - Intestinal perforation [Not Recovered/Not Resolved]
  - Staphylococcal infection [Recovered/Resolved]
  - Pain [Not Recovered/Not Resolved]
  - Seizure [Recovered/Resolved]
  - Endoscopy gastrointestinal abnormal [Not Recovered/Not Resolved]
  - Seizure [Recovered/Resolved]
  - Gallbladder rupture [Recovered/Resolved]
  - Gallbladder disorder [Recovered/Resolved]
  - Inability to afford medication [Unknown]
  - Renal disorder [Not Recovered/Not Resolved]
  - Sepsis [Recovered/Resolved]
  - Sepsis [Recovered/Resolved]
  - Adverse event [Unknown]

NARRATIVE: CASE EVENT DATE: 201805
